FAERS Safety Report 7242077-4 (Version None)
Quarter: 2011Q1

REPORT INFORMATION
  Report Type: 
  Country: None (occurrence: None)
  Receive Date: 20110124
  Receipt Date: 20110114
  Transmission Date: 20110831
  Serious: No
  Sender: FDA-Public Use
  Company Number: US-B.I. PHARMACEUTICALS,INC./RIDGEFIELD-2011-BP-01323BP

PATIENT
  Sex: Female

DRUGS (1)
  1. PRADAXA [Suspect]
     Indication: ATRIAL FIBRILLATION
     Dosage: 300 MG
     Route: 048
     Dates: start: 20110113

REACTIONS (6)
  - NASOPHARYNGITIS [None]
  - OROPHARYNGEAL PAIN [None]
  - NERVOUSNESS [None]
  - BLOOD PRESSURE INCREASED [None]
  - PALPITATIONS [None]
  - FEELING HOT [None]
